FAERS Safety Report 4391000-9 (Version None)
Quarter: 2004Q2

REPORT INFORMATION
  Report Type: 
  Country: None (occurrence: None)
  Receive Date: 20040628
  Receipt Date: 20040610
  Transmission Date: 20050107
  Serious: Yes (Other)
  Sender: FDA-Public Use
  Company Number: 601339

PATIENT

DRUGS (2)
  1. GAMMAGARD [Suspect]
     Indication: HYPOGAMMAGLOBULINAEMIA
     Dosage: INTRAVENOUS
     Route: 042
  2. GAMIMUNE N [Suspect]
     Indication: HYPOGAMMAGLOBULINAEMIA
     Dosage: INTRAVENOUS
     Route: 042

REACTIONS (2)
  - HEPATITIS B [None]
  - HEPATITIS C VIRUS [None]
